FAERS Safety Report 6790718-8 (Version None)
Quarter: 2010Q2

REPORT INFORMATION
  Report Type: 
  Country: None (occurrence: None)
  Receive Date: 20100624
  Receipt Date: 20100622
  Transmission Date: 20101027
  Serious: Yes (Hospitalization, Other)
  Sender: FDA-Public Use
  Company Number: US-ELI_LILLY_AND_COMPANY-US201006006037

PATIENT
  Sex: Female

DRUGS (5)
  1. HUMALOG MIX 50/50 [Suspect]
     Indication: DIABETES MELLITUS
     Dates: start: 20030622
  2. HUMALOG MIX 50/50 [Suspect]
  3. PLAVIX [Concomitant]
  4. AMIODARONE HCL [Concomitant]
  5. DILTIAZEM [Concomitant]

REACTIONS (7)
  - APPENDICECTOMY [None]
  - CERVIX NEOPLASM [None]
  - DRUG DISPENSING ERROR [None]
  - EYE DISORDER [None]
  - HOSPITALISATION [None]
  - INCORRECT DRUG DOSAGE FORM ADMINISTERED [None]
  - MYOCARDIAL INFARCTION [None]
